FAERS Safety Report 6668035-6 (Version None)
Quarter: 2010Q2

REPORT INFORMATION
  Report Type: 
  Country: None (occurrence: None)
  Receive Date: 20100405
  Receipt Date: 20100327
  Transmission Date: 20101027
  Serious: Yes (Hospitalization)
  Sender: FDA-Public Use
  Company Number: US-GENENTECH-298454

PATIENT
  Sex: Male
  Weight: 73.469 kg

DRUGS (8)
  1. RANIBIZUMAB [Suspect]
     Indication: MACULAR DEGENERATION
     Dosage: 0.5 MG, 1/MONTH
     Route: 042
  2. THYROXINE [Concomitant]
     Indication: HYPOTHYROIDISM
     Dosage: 200 A?G, UNK
     Route: 048
     Dates: start: 19990101
  3. PANTOPRAZOLE [Concomitant]
     Indication: GASTROOESOPHAGEAL REFLUX DISEASE
     Dosage: 40 MG, UNK
     Route: 048
     Dates: start: 20050101
  4. PILOCARPINE HYDROCHLORIDE [Concomitant]
     Indication: APTYALISM
     Dosage: 5 MG, UNK
     Route: 048
     Dates: start: 20010101
  5. CARVEDILOL [Concomitant]
     Indication: HEART RATE INCREASED
     Dosage: 6.25 MG, UNK
     Route: 048
     Dates: start: 20041201
  6. FERROUS SULFATE TAB [Concomitant]
     Indication: IRON DEFICIENCY
     Dosage: 325 MG, UNK
     Route: 048
     Dates: start: 19990101
  7. PHARMANEX EYE FORMULA EYE SUPPLEMENT (UNK ING [Concomitant]
     Indication: MEDICAL DIET
     Dosage: UNK
     Route: 048
     Dates: start: 19990101
  8. OCCULITE VITAMIN (UNK INGREDIENTS) [Concomitant]
     Indication: MEDICAL DIET
     Dosage: UNK
     Route: 048
     Dates: start: 20060101

REACTIONS (1)
  - LUNG NEOPLASM MALIGNANT [None]
